FAERS Safety Report 25705600 (Version 4)
Quarter: 2025Q3

REPORT INFORMATION
  Report Type: Spontaneous
  Country: US (occurrence: US)
  Receive Date: 20250820
  Receipt Date: 20250828
  Transmission Date: 20251021
  Serious: Yes (Other)
  Sender: GILEAD
  Company Number: US-GILEAD-2025-0724323

PATIENT
  Age: 70 Year
  Sex: Female
  Weight: 71.3 kg

DRUGS (26)
  1. LIVDELZI [Suspect]
     Active Substance: SELADELPAR LYSINE
     Indication: Primary biliary cholangitis
     Route: 065
     Dates: start: 20241007, end: 20250228
  2. ALENDRONATE [Concomitant]
     Active Substance: ALENDRONATE SODIUM
     Dosage: 70 MG, Q1WK
     Dates: start: 2023
  3. CA + D3 [Concomitant]
     Dosage: 500/200 QDAY
  4. CITALOPRAM [Concomitant]
     Active Substance: CITALOPRAM
     Dosage: 40 MG, QD
     Dates: start: 2018
  5. GLUCOSAMINE/CHONDROITIN [CHONDROITIN SULFATE SODIUM;GLUCOSAMINE HYDROC [Concomitant]
  6. VITAMINS [Concomitant]
     Active Substance: VITAMINS
  7. OCALIVA [Concomitant]
     Active Substance: OBETICHOLIC ACID
     Dosage: 5 MG, QD
     Dates: start: 20221229, end: 20230917
  8. OCALIVA [Concomitant]
     Active Substance: OBETICHOLIC ACID
     Dosage: 10 MG, QD
     Dates: start: 20230917, end: 20240417
  9. OCALIVA [Concomitant]
     Active Substance: OBETICHOLIC ACID
     Dosage: 10 MG, QD
     Dates: start: 20240417, end: 20240610
  10. OCALIVA [Concomitant]
     Active Substance: OBETICHOLIC ACID
     Dosage: 10 MG, QD
     Dates: start: 20240610
  11. ROSUVASTATIN [Concomitant]
     Active Substance: ROSUVASTATIN
     Dosage: 5 MG, QD
  12. URSODIOL [Concomitant]
     Active Substance: URSODIOL
     Dosage: 1000 MG, QD
     Dates: start: 202203, end: 20221229
  13. URSODIOL [Concomitant]
     Active Substance: URSODIOL
     Dosage: 1000 MG, QD
     Dates: start: 20221229, end: 20230917
  14. URSODIOL [Concomitant]
     Active Substance: URSODIOL
     Dosage: 1000 MG, QD
     Dates: start: 20230917, end: 20240417
  15. URSODIOL [Concomitant]
     Active Substance: URSODIOL
     Dosage: 1000 MG, QD
     Dates: start: 20240417, end: 20240610
  16. URSODIOL [Concomitant]
     Active Substance: URSODIOL
     Dosage: 1000 MG, QD (500 MG BID)
     Dates: start: 20240610
  17. DICLOFENAC [Concomitant]
     Active Substance: DICLOFENAC
     Dosage: 500 MG, BID
     Dates: start: 20240809, end: 20250214
  18. PAXLOVID [Concomitant]
     Active Substance: NIRMATRELVIR\RITONAVIR
     Dates: start: 20241227
  19. PREDNISONE [Concomitant]
     Active Substance: PREDNISONE
     Dosage: 20 MG, QD
     Dates: start: 20250326
  20. PREDNISONE [Concomitant]
     Active Substance: PREDNISONE
     Dosage: 15 MG, QD
     Dates: start: 20250414
  21. PREDNISONE [Concomitant]
     Active Substance: PREDNISONE
     Dosage: 7.5 MG, QD
     Dates: start: 20250516
  22. PREDNISONE [Concomitant]
     Active Substance: PREDNISONE
     Dosage: 10 MG, QD
     Dates: start: 20250530
  23. MYCOPHENOLATE MOFETIL [Concomitant]
     Active Substance: MYCOPHENOLATE MOFETIL
     Dosage: 500 MG, BID
     Dates: start: 20250326
  24. MYCOPHENOLATE MOFETIL [Concomitant]
     Active Substance: MYCOPHENOLATE MOFETIL
     Dosage: 750 MG, BID
     Dates: start: 20250414
  25. MYCOPHENOLATE MOFETIL [Concomitant]
     Active Substance: MYCOPHENOLATE MOFETIL
     Dosage: 1000 MG, BID
     Dates: start: 20250516
  26. OMEPRAZOLE [Concomitant]
     Active Substance: OMEPRAZOLE
     Dosage: 20 MG, QD
     Dates: start: 20250326

REACTIONS (7)
  - Liver injury [Unknown]
  - Hepatitis [Unknown]
  - Alanine aminotransferase increased [Recovered/Resolved]
  - Aspartate aminotransferase increased [Recovered/Resolved]
  - Blood alkaline phosphatase increased [Unknown]
  - Gamma-glutamyltransferase increased [Unknown]
  - Bilirubin conjugated increased [Recovered/Resolved]

NARRATIVE: CASE EVENT DATE: 20241024
